FAERS Safety Report 10246532 (Version 1)
Quarter: 2014Q1

REPORT INFORMATION
  Report Type: Spontaneous
  Country: US (occurrence: None)
  Receive Date: 20140306
  Receipt Date: 20140306
  Transmission Date: 20141002
  Serious: Yes (Hospitalization, Other)
  Sender: FDA-Public Use
  Company Number: 163-21880-13082731

PATIENT
  Age: 61 Year
  Sex: Male
  Weight: 88.72 kg

DRUGS (6)
  1. REVLIMID (LENALIDOMIDE) (CAPSULES) [Suspect]
     Indication: PLASMA CELL MYELOMA
     Route: 048
     Dates: start: 20120430
  2. AMLODIPINE BENAZEPRIL (AMLODIPINE BESYLATE W/BENAZEPRIL HYDROCHLOR.) [Concomitant]
  3. GLIPIZIDE (GLIPIZIDE) (TABLETS) [Concomitant]
  4. VENTOLIN HFA (SALBUTAMOL SULFATE) [Concomitant]
  5. PAMIDRONATE (PAMIDRONATE DISODIUM) [Concomitant]
  6. ZOMETA (ZOLEDRONIC ACID) [Concomitant]

REACTIONS (2)
  - Pneumonia [None]
  - Disease recurrence [None]
